FAERS Safety Report 13071962 (Version 1)
Quarter: 2016Q4

REPORT INFORMATION
  Report Type: Spontaneous
  Country: US (occurrence: US)
  Receive Date: 20161228
  Receipt Date: 20161228
  Transmission Date: 20170207
  Serious: No
  Sender: FDA-Public Use
  Company Number: None

PATIENT
  Age: 24 Year
  Sex: Female
  Weight: 118.04 kg

DRUGS (2)
  1. MIRENA [Suspect]
     Active Substance: LEVONORGESTREL
  2. IBUPROPHEN [Concomitant]
     Active Substance: IBUPROFEN

REACTIONS (2)
  - Malaise [None]
  - Pain [None]

NARRATIVE: CASE EVENT DATE: 20161111
